FAERS Safety Report 5314636-7 (Version None)
Quarter: 2007Q2

REPORT INFORMATION
  Report Type: 
  Country: None (occurrence: None)
  Receive Date: 20070427
  Receipt Date: 20070416
  Transmission Date: 20071010
  Serious: Yes (Death, Hospitalization)
  Sender: FDA-Public Use
  Company Number: 108437ISR

PATIENT
  Age: 79 Year
  Sex: Female

DRUGS (5)
  1. AMITRIPTYLINE HCL [Suspect]
     Indication: DEPRESSION
     Dosage: 75 MG
  2. TRAMADOL HCL [Suspect]
     Indication: SCIATICA
  3. ROFECOXIB [Concomitant]
  4. MORPHINE [Concomitant]
  5. DI-GESIC [Concomitant]

REACTIONS (15)
  - BLOOD CREATINE PHOSPHOKINASE INCREASED [None]
  - BRADYCARDIA [None]
  - COMA [None]
  - CONFUSIONAL STATE [None]
  - CONVULSION [None]
  - DRUG INTERACTION [None]
  - FALL [None]
  - GENERAL PHYSICAL HEALTH DETERIORATION [None]
  - HYPOTENSION [None]
  - METABOLIC ACIDOSIS [None]
  - NO THERAPEUTIC RESPONSE [None]
  - OVERDOSE [None]
  - RESPIRATORY DISORDER [None]
  - SEPSIS [None]
  - SEROTONIN SYNDROME [None]
